FAERS Safety Report 8543278-5 (Version None)
Quarter: 2012Q3

REPORT INFORMATION
  Report Type: 
  Country: None (occurrence: None)
  Receive Date: 20120716
  Receipt Date: 20120702
  Transmission Date: 20120928
  Serious: Yes (Other)
  Sender: FDA-Public Use
  Company Number: 7144361

PATIENT
  Age: 45 Year
  Sex: Female

DRUGS (3)
  1. NORVIR [Suspect]
     Indication: PRODUCT USED FOR UNKNOWN INDICATION
     Dosage: 200 MG (100 MG, 2 IN 1 D)
     Route: 048
     Dates: start: 20120117
  2. TRUVADA (EMTRICITABINE) (TENOFOVIR DISOPROXIL, EMTRICITABINE) [Concomitant]
  3. LEVOTHYROXINE SODIUM [Suspect]
     Indication: PRODUCT USED FOR UNKNOWN INDICATION
     Dosage: 300 MCG (300 MCG, 1 IN 1 D)
     Route: 048

REACTIONS (3)
  - THYROID FUNCTION TEST ABNORMAL [None]
  - BLOOD THYROID STIMULATING HORMONE DECREASED [None]
  - DRUG INTERACTION [None]
